FAERS Safety Report 9577132 (Version 1)
Quarter: 2013Q4

REPORT INFORMATION
  Report Type: Spontaneous
  Country: US (occurrence: US)
  Receive Date: 20131001
  Receipt Date: 20131001
  Transmission Date: 20140711
  Serious: Yes (Hospitalization, Other)
  Sender: FDA-Public Use
  Company Number: US-AMGEN-USASP2013006256

PATIENT
  Age: 51 Year
  Sex: Female

DRUGS (1)
  1. ENBREL [Suspect]
     Indication: RHEUMATOID ARTHRITIS
     Dosage: 50 MG, ONCE A WEEK
     Dates: start: 20040601, end: 20120704

REACTIONS (4)
  - Sepsis [Not Recovered/Not Resolved]
  - Psoriasis [Recovering/Resolving]
  - Skin ulcer [Recovered/Resolved]
  - Drug hypersensitivity [Not Recovered/Not Resolved]
